FAERS Safety Report 7206058-9 (Version None)
Quarter: 2010Q4

REPORT INFORMATION
  Report Type: 
  Country: None (occurrence: None)
  Receive Date: 20101229
  Receipt Date: 20101229
  Transmission Date: 20110411
  Serious: Yes (Disabling)
  Sender: FDA-Public Use
  Company Number: None

PATIENT
  Age: 16 Year
  Sex: Female

DRUGS (1)
  1. HALDOL [Suspect]

REACTIONS (4)
  - DYSKINESIA [None]
  - MUSCLE TWITCHING [None]
  - SPEECH DISORDER [None]
  - URINARY INCONTINENCE [None]
